FAERS Safety Report 5262041-4 (Version None)
Quarter: 2007Q1

REPORT INFORMATION
  Report Type: 
  Country: None (occurrence: None)
  Receive Date: 20061208
  Receipt Date: 20060720
  Transmission Date: 20070707
  Serious: Yes (Other)
  Sender: FDA-Public Use
  Company Number: USA-2006-0024693

PATIENT
  Age: 53 Year
  Sex: Male
  Weight: 122.4 kg

DRUGS (3)
  1. OXYCONTIN [Suspect]
     Indication: BACK PAIN
     Dosage: 10 MG, Q12H, ORAL
     Route: 048
     Dates: start: 20060101, end: 20060101
  2. PERCOCET [Suspect]
     Indication: PAIN
  3. VALIUM [Concomitant]

REACTIONS (3)
  - EUPHORIC MOOD [None]
  - MULTIPLE DRUG OVERDOSE ACCIDENTAL [None]
  - SUBSTANCE ABUSE [None]
